FAERS Safety Report 6745052-9 (Version None)
Quarter: 2010Q2

REPORT INFORMATION
  Report Type: 
  Country: None (occurrence: None)
  Receive Date: 20100527
  Receipt Date: 20100515
  Transmission Date: 20101027
  Serious: Yes (Congenital Anomaly)
  Sender: FDA-Public Use
  Company Number: SE-WATSON-2010-06998

PATIENT

DRUGS (4)
  1. SERTRALINE HCL [Suspect]
     Indication: DRUG USE FOR UNKNOWN INDICATION
     Dosage: UNK
  2. CITALOPRAM HYDROBROMIDE [Suspect]
     Indication: DRUG USE FOR UNKNOWN INDICATION
     Dosage: UNK
  3. FLUOXETINE [Suspect]
     Indication: DRUG USE FOR UNKNOWN INDICATION
     Dosage: UNK
  4. FLUVOXAMINE (WATSON LABORATORIES) [Suspect]
     Indication: DRUG USE FOR UNKNOWN INDICATION
     Dosage: UNK

REACTIONS (3)
  - CONGENITAL CYSTIC KIDNEY DISEASE [None]
  - FOETAL CARDIAC DISORDER [None]
  - FOETAL MALFORMATION [None]
